FAERS Safety Report 16450418 (Version 1)
Quarter: 2019Q2

REPORT INFORMATION
  Report Type: Spontaneous
  Country: US (occurrence: US)
  Receive Date: 20190509
  Receipt Date: 20190509
  Transmission Date: 20190711
  Serious: Yes (Death)
  Sender: FDA-Public Use
  Company Number: None

PATIENT
  Age: 57 Year
  Sex: Male

DRUGS (7)
  1. AMLODIPINE [Concomitant]
     Active Substance: AMLODIPINE BESYLATE
  2. NORVASC [Concomitant]
     Active Substance: AMLODIPINE BESYLATE
  3. ZOLOFT [Concomitant]
     Active Substance: SERTRALINE HYDROCHLORIDE
  4. VIT D [Concomitant]
     Active Substance: VITAMIN D NOS
  5. JADENU [Suspect]
     Active Substance: DEFERASIROX
     Indication: IRON METABOLISM DISORDER
     Route: 048
     Dates: start: 20150624, end: 20190508
  6. EXJADE [Concomitant]
     Active Substance: DEFERASIROX
  7. FOLIC ACID. [Concomitant]
     Active Substance: FOLIC ACID

REACTIONS (1)
  - Death [None]
